FAERS Safety Report 9632779 (Version 1)
Quarter: 2013Q4

REPORT INFORMATION
  Report Type: Report from Study
  Country: US (occurrence: US)
  Receive Date: 20131018
  Receipt Date: 20131018
  Transmission Date: 20140711
  Serious: Yes (Other)
  Sender: FDA-Public Use
  Company Number: US-ABBVIE-13P-163-1157389-00

PATIENT
  Age: 58 Year
  Sex: Female
  Weight: 80.81 kg

DRUGS (13)
  1. HUMIRA [Suspect]
     Indication: RHEUMATOID ARTHRITIS
     Dates: start: 20130508, end: 20130508
  2. HUMIRA [Suspect]
     Dates: start: 20131009
  3. CYCLOBENZAPRINE [Concomitant]
     Indication: MUSCLE SPASMS
  4. LEVOTHYROXINE [Concomitant]
     Indication: THYROID DISORDER
  5. PANTOPRAZOLE [Concomitant]
     Indication: GASTROOESOPHAGEAL REFLUX DISEASE
  6. TOPIRAMATE [Concomitant]
     Indication: DEPRESSION
  7. CITALOPRAM [Concomitant]
     Indication: BIPOLAR DISORDER
  8. TRAZODONE [Concomitant]
     Indication: INSOMNIA
  9. ZALEPLON [Concomitant]
     Indication: INSOMNIA
  10. VITAMIN D [Concomitant]
     Indication: ARTHRITIS
  11. ONDANSETRON [Concomitant]
     Indication: NAUSEA
  12. ALPRAZOLAM [Concomitant]
     Indication: ANXIETY
  13. LISINOPRIL [Concomitant]
     Indication: HYPERTENSION

REACTIONS (5)
  - Renal failure acute [Unknown]
  - Breast cancer [Unknown]
  - Gait disturbance [Not Recovered/Not Resolved]
  - Nausea [Not Recovered/Not Resolved]
  - Arthralgia [Not Recovered/Not Resolved]
